FAERS Safety Report 5824397-0 (Version None)
Quarter: 2008Q3

REPORT INFORMATION
  Report Type: 
  Country: None (occurrence: None)
  Receive Date: 20080728
  Receipt Date: 20080717
  Transmission Date: 20090109
  Serious: Yes (Life-Threatening, Hospitalization)
  Sender: FDA-Public Use
  Company Number: A0733744A

PATIENT
  Age: 57 Year
  Sex: Female
  Weight: 43.6 kg

DRUGS (4)
  1. LAPATINIB [Suspect]
     Dosage: 1250MG PER DAY
     Route: 048
     Dates: start: 20071129
  2. TOPOTECAN [Suspect]
     Dosage: 3.2MGM2 CYCLIC
     Route: 042
     Dates: start: 20071129
  3. CAPECITABINE [Suspect]
     Dosage: 2000MGM2 PER DAY
     Route: 048
     Dates: start: 20080404
  4. DEXAMETHASONE [Concomitant]
     Dosage: .75MG TWICE PER DAY
     Route: 048
     Dates: start: 20071104

REACTIONS (3)
  - CELLULITIS [None]
  - ERYTHEMA [None]
  - PAIN IN EXTREMITY [None]
